FAERS Safety Report 22529115 (Version 1)
Quarter: 2023Q2

REPORT INFORMATION
  Report Type: Spontaneous
  Country: DE (occurrence: DE)
  Receive Date: 20230607
  Receipt Date: 20230607
  Transmission Date: 20230722
  Serious: Yes (Death, Other)
  Sender: FDA-Public Use
  Company Number: DE-KYOWAKIRIN-2023AKK007861

PATIENT

DRUGS (1)
  1. EPOETIN ALFA [Suspect]
     Active Substance: ERYTHROPOIETIN
     Indication: Nephrogenic anaemia
     Dosage: UNK
     Route: 058

REACTIONS (30)
  - Gangrene [Fatal]
  - Haemoglobin decreased [Fatal]
  - Hypertensive urgency [Unknown]
  - Haemoglobin decreased [Unknown]
  - Aplasia pure red cell [Unknown]
  - Angioedema [Unknown]
  - Arrhythmia [Unknown]
  - Diarrhoea [Unknown]
  - Lip swelling [Unknown]
  - Influenza like illness [Unknown]
  - Dyskinesia [Unknown]
  - Somnolence [Unknown]
  - Nightmare [Unknown]
  - Breast disorder [Unknown]
  - Hypertrichosis [Unknown]
  - Dermatitis atopic [Unknown]
  - Palpitations [Unknown]
  - Dermatitis allergic [Unknown]
  - Nausea [Unknown]
  - Swollen tongue [Unknown]
  - Vomiting [Unknown]
  - Malaise [Unknown]
  - Bone pain [Unknown]
  - Dizziness [Unknown]
  - Headache [Unknown]
  - Vulvovaginal pruritus [Unknown]
  - Eczema [Unknown]
  - Pruritus [Unknown]
  - Rash [Unknown]
  - Hypertension [Unknown]
